FAERS Safety Report 5329020-X (Version None)
Quarter: 2007Q2

REPORT INFORMATION
  Report Type: 
  Country: None (occurrence: None)
  Receive Date: 20070518
  Receipt Date: 20070510
  Transmission Date: 20071010
  Serious: Yes (Hospitalization, Other)
  Sender: FDA-Public Use
  Company Number: US-PFIZER INC-2005095003

PATIENT
  Sex: Female
  Weight: 52.2 kg

DRUGS (1)
  1. XALATAN [Suspect]
     Indication: OPEN ANGLE GLAUCOMA
     Route: 047
     Dates: start: 20010618, end: 20050628

REACTIONS (11)
  - ACQUIRED OESOPHAGEAL WEB [None]
  - CHEST DISCOMFORT [None]
  - DRUG ADMINISTRATION ERROR [None]
  - DRUG DOSE OMISSION [None]
  - DRUG INEFFECTIVE [None]
  - HEART RATE INCREASED [None]
  - HYPOTHYROIDISM [None]
  - MUSCULOSKELETAL DISCOMFORT [None]
  - ORAL DISCOMFORT [None]
  - RENAL CELL CARCINOMA STAGE UNSPECIFIED [None]
  - VISUAL ACUITY REDUCED [None]
